FAERS Safety Report 11271235 (Version 4)
Quarter: 2015Q4

REPORT INFORMATION
  Report Type: Spontaneous
  Country: US (occurrence: US)
  Receive Date: 20150714
  Receipt Date: 20151012
  Transmission Date: 20160304
  Serious: Yes (Other)
  Sender: FDA-Public Use
  Company Number: US-BAYER-2015-374443

PATIENT
  Age: 17 Year
  Sex: Male
  Weight: 70.3 kg

DRUGS (12)
  1. TREPROSTINIL [Suspect]
     Active Substance: TREPROSTINIL
     Indication: PULMONARY HYPERTENSION
     Dosage: 4 MG, TID
     Route: 048
  2. SINGULAIR [Suspect]
     Active Substance: MONTELUKAST SODIUM
  3. TREPROSTINIL [Suspect]
     Active Substance: TREPROSTINIL
     Indication: PULMONARY HYPERTENSION
     Dosage: 4 MG, BID
     Route: 048
     Dates: start: 20140829
  4. TREPROSTINIL [Suspect]
     Active Substance: TREPROSTINIL
     Indication: PULMONARY HYPERTENSION
     Dosage: 3 MG, BID
     Route: 048
     Dates: start: 20140818
  5. TREPROSTINIL [Suspect]
     Active Substance: TREPROSTINIL
     Indication: PULMONARY HYPERTENSION
     Dosage: 3 MG, BID
     Route: 048
     Dates: start: 20140830
  6. TREPROSTINIL [Suspect]
     Active Substance: TREPROSTINIL
     Indication: PULMONARY HYPERTENSION
     Dosage: 3 MG, TID
     Route: 048
     Dates: start: 20140829
  7. TREPROSTINIL [Suspect]
     Active Substance: TREPROSTINIL
     Indication: PULMONARY HYPERTENSION
     Dosage: UNK UNK, BID
     Route: 048
  8. SEROQUEL [Suspect]
     Active Substance: QUETIAPINE FUMARATE
  9. LORAZEPAM. [Suspect]
     Active Substance: LORAZEPAM
  10. LAMICTAL [Suspect]
     Active Substance: LAMOTRIGINE
  11. ADEMPAS [Suspect]
     Active Substance: RIOCIGUAT
  12. OPSUMIT [Concomitant]
     Active Substance: MACITENTAN

REACTIONS (18)
  - Dizziness [None]
  - Headache [Not Recovered/Not Resolved]
  - Acne [None]
  - Psychomotor hyperactivity [Not Recovered/Not Resolved]
  - Abdominal discomfort [None]
  - Chest pain [None]
  - Diarrhoea [None]
  - Palpitations [None]
  - Mood altered [None]
  - Heart rate increased [None]
  - Somnolence [None]
  - Vomiting [None]
  - Nausea [None]
  - Flushing [None]
  - Abdominal pain upper [Not Recovered/Not Resolved]
  - Depression [None]
  - Dyspnoea exertional [Not Recovered/Not Resolved]
  - Urticaria [None]

NARRATIVE: CASE EVENT DATE: 20150512
